FAERS Safety Report 14289780 (Version 2)
Quarter: 2019Q4

REPORT INFORMATION
  Report Type: Spontaneous
  Country: JP (occurrence: JP)
  Receive Date: 20171214
  Receipt Date: 20191006
  Transmission Date: 20200122
  Serious: Yes (Hospitalization, Other)
  Sender: FDA-Public Use
  Company Number: JP-BRISTOL-MYERS SQUIBB COMPANY-BMS-2017-111427

PATIENT

DRUGS (1)
  1. HYDREA [Suspect]
     Active Substance: HYDROXYUREA
     Indication: ESSENTIAL THROMBOCYTHAEMIA
     Dosage: 500 MG, QOD
     Route: 065

REACTIONS (5)
  - White blood cell count decreased [Unknown]
  - Cerebral infarction [Unknown]
  - Pyrexia [Unknown]
  - Anaemia [Unknown]
  - Infection [Unknown]
